FAERS Safety Report 17839790 (Version 1)
Quarter: 2020Q2

REPORT INFORMATION
  Report Type: Spontaneous
  Country: US (occurrence: US)
  Receive Date: 20200529
  Receipt Date: 20200529
  Transmission Date: 20200714
  Serious: Yes (Death)
  Sender: FDA-Public Use
  Company Number: None

PATIENT
  Age: 81 Year
  Sex: Female
  Weight: 88.6 kg

DRUGS (22)
  1. ACETAMINOPHEN. [Concomitant]
     Active Substance: ACETAMINOPHEN
     Dates: start: 20200509, end: 20200517
  2. ATORVASTATIN [Concomitant]
     Active Substance: ATORVASTATIN
     Dates: start: 20200510, end: 20200524
  3. LABETOLOL [Concomitant]
     Active Substance: LABETALOL HYDROCHLORIDE
     Dates: start: 20200519
  4. REMDESIVIR. [Suspect]
     Active Substance: REMDESIVIR
     Indication: COVID-19
     Route: 040
     Dates: start: 20200515, end: 20200520
  5. ASPIRIN. [Concomitant]
     Active Substance: ASPIRIN
     Dates: start: 20200510, end: 20200520
  6. LACTATED RINGERS SOLUTION [Concomitant]
     Active Substance: CALCIUM CHLORIDE\POTASSIUM CHLORIDE\SODIUM CHLORIDE\SODIUM LACTATE
     Dates: start: 20200513, end: 20200513
  7. LEVOTHYROXINE. [Concomitant]
     Active Substance: LEVOTHYROXINE
     Dates: start: 20200510, end: 20200524
  8. NORMOSOL-R [Concomitant]
     Active Substance: MAGNESIUM CHLORIDE\POTASSIUM CHLORIDE\SODIUM ACETATE ANHYDROUS\SODIUM CHLORIDE\SODIUM GLUCONATE
     Dates: start: 20200515, end: 20200520
  9. ENOXAPARIN [Concomitant]
     Active Substance: ENOXAPARIN
     Dates: start: 20200509, end: 20200520
  10. FUROSEMIDE. [Concomitant]
     Active Substance: FUROSEMIDE
     Dates: start: 20200510
  11. HYDROMORPHONE [Concomitant]
     Active Substance: HYDROMORPHONE
     Dates: start: 20200524, end: 20200524
  12. GUAIFENESIN/CODEINE [Concomitant]
     Active Substance: CODEINE PHOSPHATE\GUAIFENESIN
     Dates: start: 20200518, end: 20200518
  13. HEPARIN [Concomitant]
     Active Substance: HEPARIN SODIUM
     Dates: start: 20200520, end: 20200524
  14. INSULIN (GLARGINE, LISPRO AND REGULAR) [Concomitant]
     Dates: start: 20200510, end: 20200524
  15. LIDOCAINE HYDROCHLORIDE AND EPINEPHRINE BITARTRATE [Concomitant]
     Active Substance: EPINEPHRINE BITARTRATE\LIDOCAINE HYDROCHLORIDE
     Dates: start: 20200514, end: 20200514
  16. BENZONATATE. [Concomitant]
     Active Substance: BENZONATATE
     Dates: start: 20200518, end: 20200519
  17. FENTANYL. [Concomitant]
     Active Substance: FENTANYL
     Dates: start: 20200520, end: 20200524
  18. MORPHINE [Concomitant]
     Active Substance: MORPHINE
     Dates: start: 20200518, end: 20200524
  19. AMLODIPINE [Concomitant]
     Active Substance: AMLODIPINE BESYLATE
     Dates: start: 20200519, end: 20200520
  20. HYDROCHLOROTHIAZIDE. [Concomitant]
     Active Substance: HYDROCHLOROTHIAZIDE
     Dates: start: 20200510, end: 20200510
  21. LORAZEPAM. [Concomitant]
     Active Substance: LORAZEPAM
     Dates: start: 20200518, end: 20200520
  22. MAGNESIUM SULFATE. [Concomitant]
     Active Substance: MAGNESIUM SULFATE
     Dates: start: 20200510, end: 20200514

REACTIONS (3)
  - Dialysis [None]
  - Tachypnoea [None]
  - Renal failure [None]

NARRATIVE: CASE EVENT DATE: 20200524
